FAERS Safety Report 4917937-7 (Version None)
Quarter: 2006Q1

REPORT INFORMATION
  Report Type: 
  Country: None (occurrence: None)
  Receive Date: 20060221
  Receipt Date: 20051005
  Transmission Date: 20060701
  Serious: Yes (Hospitalization, Disabling, Other)
  Sender: FDA-Public Use
  Company Number: PR-MERCK-0510USA05138

PATIENT
  Age: 55 Year
  Sex: Female
  Weight: 66 kg

DRUGS (1)
  1. VIOXX [Suspect]
     Indication: MYALGIA
     Route: 048
     Dates: start: 20010101, end: 20040901

REACTIONS (14)
  - ANGINA PECTORIS [None]
  - ANXIETY [None]
  - ARRHYTHMIA [None]
  - ARTHRITIS [None]
  - CARDIAC FAILURE [None]
  - CARDIOVASCULAR DISORDER [None]
  - CEREBROVASCULAR ACCIDENT [None]
  - CORONARY ARTERY DISEASE [None]
  - DEPRESSION [None]
  - HYPERSENSITIVITY [None]
  - HYPERTENSION [None]
  - MIGRAINE [None]
  - MUSCLE SPASMS [None]
  - MYOCARDIAL ISCHAEMIA [None]
